FAERS Safety Report 18996119 (Version 2)
Quarter: 2021Q2

REPORT INFORMATION
  Report Type: Spontaneous
  Country: US (occurrence: US)
  Receive Date: 20210311
  Receipt Date: 20210405
  Transmission Date: 20210717
  Serious: No
  Sender: FDA-Public Use
  Company Number: US-GLAXOSMITHKLINE-USCH2021012019

PATIENT
  Age: 87 Year
  Sex: Female

DRUGS (1)
  1. VOLTAREN ARTHRITIS PAIN [Suspect]
     Active Substance: DICLOFENAC SODIUM
     Indication: ARTHRITIS
     Dosage: UNK, QID
     Dates: start: 20210305, end: 20210307

REACTIONS (7)
  - Hypoaesthesia [Unknown]
  - Dry mouth [Unknown]
  - Dizziness [Unknown]
  - Pyrexia [Unknown]
  - Palpitations [Unknown]
  - Feeling abnormal [Unknown]
  - Sensation of blood flow [Unknown]

NARRATIVE: CASE EVENT DATE: 20210305
